FAERS Safety Report 8160574-4 (Version None)
Quarter: 2012Q1

REPORT INFORMATION
  Report Type: 
  Country: None (occurrence: None)
  Receive Date: 20120223
  Receipt Date: 20120220
  Transmission Date: 20120608
  Serious: Yes (Other)
  Sender: FDA-Public Use
  Company Number: US-AMGEN-USASP2012004563

PATIENT
  Age: 55 Year
  Sex: Female
  Weight: 58.05 kg

DRUGS (6)
  1. CO Q 10 [Concomitant]
     Dosage: UNK
  2. LECITHIN [Concomitant]
     Dosage: UNK
  3. PROLIA [Suspect]
     Indication: OSTEOPOROSIS
     Dosage: 60 MG, Q6MO
     Route: 058
     Dates: start: 20120119
  4. ASPIRIN [Concomitant]
     Dosage: UNK
  5. MULTI-VITAMIN [Concomitant]
     Dosage: UNK
  6. PROTONIX [Concomitant]
     Dosage: UNK

REACTIONS (2)
  - MUSCLE DISORDER [None]
  - GASTROOESOPHAGEAL REFLUX DISEASE [None]
